FAERS Safety Report 9069830 (Version 3)
Quarter: 2013Q1

REPORT INFORMATION
  Report Type: Spontaneous
  Country: GB (occurrence: GB)
  Receive Date: 20130215
  Receipt Date: 20130325
  Transmission Date: 20140127
  Serious: Yes (Hospitalization)
  Sender: FDA-Public Use
  Company Number: GB-GLAXOSMITHKLINE-B0867213A

PATIENT
  Age: 18 None
  Sex: Female

DRUGS (1)
  1. NICORETTE [Suspect]
     Indication: EX-TOBACCO USER
     Dosage: 1PAT PER DAY
     Route: 062
     Dates: start: 20130208

REACTIONS (2)
  - Skin reaction [Recovered/Resolved]
  - Product quality issue [Unknown]
